FAERS Safety Report 24836818 (Version 2)
Quarter: 2025Q3

REPORT INFORMATION
  Report Type: Spontaneous
  Country: CN (occurrence: CN)
  Receive Date: 20250113
  Receipt Date: 20250911
  Transmission Date: 20251021
  Serious: Yes (Hospitalization)
  Sender: MYLAN
  Company Number: CN-MYLANLABS-2025M1001371

PATIENT
  Age: 69 Year
  Sex: Male
  Weight: 55 kg

DRUGS (20)
  1. PREGABALIN [Suspect]
     Active Substance: PREGABALIN
     Indication: Neuropathy peripheral
     Dosage: 75 MILLIGRAM, BID (TWICE DAILY)
     Dates: start: 20241123, end: 20250120
  2. PREGABALIN [Suspect]
     Active Substance: PREGABALIN
     Dosage: 150 MILLIGRAM, BID (TWICE DAILY)
     Dates: start: 20250221, end: 20250310
  3. PREGABALIN [Suspect]
     Active Substance: PREGABALIN
     Dosage: 75 MILLIGRAM, BID (TWICE DAILY)
     Dates: start: 20250311, end: 20250313
  4. PREGABALIN [Suspect]
     Active Substance: PREGABALIN
     Dosage: 75 MILLIGRAM, BID (TWICE DAILY)
     Dates: start: 20250401, end: 20250812
  5. THIAMINE [Suspect]
     Active Substance: THIAMINE
     Indication: Neuropathy peripheral
     Dosage: 10 MILLIGRAM, TID
     Dates: start: 20241215
  6. METHYLCOBALAMIN [Suspect]
     Active Substance: METHYLCOBALAMIN
     Indication: Neuropathy peripheral
     Dosage: 0.5 MILLIGRAM, TID
     Dates: start: 20241023, end: 20250120
  7. METHYLCOBALAMIN [Suspect]
     Active Substance: METHYLCOBALAMIN
     Dosage: 0.5 MILLIGRAM, TID
     Dates: start: 20250221
  8. OXALIPLATIN [Concomitant]
     Active Substance: OXALIPLATIN
     Indication: Gastric cancer
     Dosage: 100 MILLIGRAM/SQ. METER, Q3W
     Dates: start: 20240730
  9. TORIPALIMAB [Concomitant]
     Active Substance: TORIPALIMAB
     Indication: Gastric cancer
     Dosage: 3 MILLIGRAM/KILOGRAM, Q2W
     Dates: start: 20240730, end: 20241120
  10. CELECOXIB [Concomitant]
     Active Substance: CELECOXIB
     Indication: Pain in extremity
     Dosage: 0.2 MILLIGRAM, BID (TWICE DAILY)
     Dates: start: 20240812, end: 20250120
  11. FERROUS SUCCINATE [Concomitant]
     Active Substance: FERROUS SUCCINATE
     Indication: Anaemia
     Dosage: 0.1 GRAM, QD
     Dates: start: 20240911
  12. ZOLPIDEM TARTRATE [Concomitant]
     Active Substance: ZOLPIDEM TARTRATE
     Indication: Insomnia
     Dosage: 10 MILLIGRAM, PM
     Dates: start: 20241113, end: 20241219
  13. CAPECITABINE [Concomitant]
     Active Substance: CAPECITABINE
     Indication: Gastric cancer
     Dosage: UNK, Q3W (750 MILLIGRAM/SQ. METER, Q3W, D1-14)
     Dates: start: 20240730, end: 20241127
  14. LEUCOGEN [Concomitant]
     Active Substance: LEUCOGEN
     Indication: Platelet count decreased
     Dosage: 120 MILLIGRAM, QD
     Dates: start: 20241202
  15. MEGESTROL ACETATE [Concomitant]
     Active Substance: MEGESTROL ACETATE
     Indication: Decreased appetite
     Dosage: 80 MILLIGRAM, BID
     Dates: start: 20241202
  16. POTASSIUM CHLORIDE [Concomitant]
     Active Substance: POTASSIUM CHLORIDE
     Indication: Hypokalaemia
     Dosage: 2 GRAM, QD
     Dates: start: 20241202, end: 20241212
  17. Di yu sheng bai [Concomitant]
     Indication: Blood disorder prophylaxis
     Dosage: 1.2 GRAM, QD
     Dates: start: 20240731, end: 20241214
  18. Di yu sheng bai [Concomitant]
     Dosage: 0.4 GRAM, TID
  19. Di yu sheng bai [Concomitant]
  20. Di yu sheng bai [Concomitant]
     Dosage: 0.2 GRAM, TID (THREE TIMES DAILY)
     Dates: start: 20241215

REACTIONS (1)
  - Therapeutic product effect incomplete [Unknown]
